FAERS Safety Report 25925978 (Version 1)
Quarter: 2025Q4

REPORT INFORMATION
  Report Type: Spontaneous
  Country: US (occurrence: US)
  Receive Date: 20251015
  Receipt Date: 20251015
  Transmission Date: 20260118
  Serious: Yes (Hospitalization)
  Sender: ANI
  Company Number: US-ANIPHARMA-2025-US-045799

PATIENT
  Sex: Male
  Weight: 102.51 kg

DRUGS (18)
  1. MAGNESIUM ELEMENTAL [Concomitant]
  2. MULTIPLE VITAMINS/MINERAL [Concomitant]
  3. REPATHA [Concomitant]
     Active Substance: EVOLOCUMAB
  4. ACETAMINOPHEN [Concomitant]
     Active Substance: ACETAMINOPHEN
  5. AMLODIPINE [Concomitant]
     Active Substance: AMLODIPINE BESYLATE
  6. CYTOXAN [Concomitant]
     Active Substance: CYCLOPHOSPHAMIDE
  7. HYDRALAZINE [Concomitant]
     Active Substance: HYDRALAZINE HYDROCHLORIDE
  8. METOLAZONE [Concomitant]
     Active Substance: METOLAZONE
  9. POTASSIUM CHLORIDE [Concomitant]
     Active Substance: POTASSIUM CHLORIDE
  10. TACROLIMUS [Concomitant]
     Active Substance: TACROLIMUS
  11. SERTRALINE HYDROCHLORIDE [Concomitant]
     Active Substance: SERTRALINE HYDROCHLORIDE
  12. METOPROLOL TARTRATE [Concomitant]
     Active Substance: METOPROLOL TARTRATE
  13. TORSEMIDE [Concomitant]
     Active Substance: TORSEMIDE
  14. OMEPRAZOLE [Concomitant]
     Active Substance: OMEPRAZOLE
  15. JARDIANCE [Concomitant]
     Active Substance: EMPAGLIFLOZIN
  16. ONDANSETRON HYDROCHLORIDE [Concomitant]
     Active Substance: ONDANSETRON HYDROCHLORIDE
  17. LISINOPRIL [Concomitant]
     Active Substance: LISINOPRIL
  18. CORTICOTROPIN [Suspect]
     Active Substance: CORTICOTROPIN
     Indication: Nephrotic syndrome
     Dosage: 2 TIMES A WEEK, 80 UNITS
     Route: 058

REACTIONS (4)
  - Hospitalisation [Recovered/Resolved]
  - Product dose omission issue [Recovered/Resolved]
  - Dialysis [Not Recovered/Not Resolved]
  - Contraindicated product administered [Not Recovered/Not Resolved]
